FAERS Safety Report 23471010 (Version 2)
Quarter: 2024Q1

REPORT INFORMATION
  Report Type: Report from Study
  Country: US (occurrence: US)
  Receive Date: 20240202
  Receipt Date: 20240318
  Transmission Date: 20240409
  Serious: No
  Sender: FDA-Public Use
  Company Number: US-BIOVITRUM-2023US02414

PATIENT
  Age: 48 Year
  Sex: Male

DRUGS (1)
  1. KINERET [Suspect]
     Active Substance: ANAKINRA
     Indication: Inner ear disorder
     Dosage: 100MG, DAILY
     Route: 058
     Dates: start: 20210930

REACTIONS (10)
  - Intentional product misuse [Not Recovered/Not Resolved]
  - Product dose omission issue [Unknown]
  - Headache [Unknown]
  - Malaise [Unknown]
  - Memory impairment [Unknown]
  - Pain [Unknown]
  - Chills [Unknown]
  - Blood cholesterol increased [Unknown]
  - Nausea [Unknown]
  - Influenza [Unknown]

NARRATIVE: CASE EVENT DATE: 20210930
